FAERS Safety Report 17507548 (Version 1)
Quarter: 2020Q1

REPORT INFORMATION
  Report Type: Spontaneous
  Country: NL (occurrence: NL)
  Receive Date: 20200306
  Receipt Date: 20200306
  Transmission Date: 20200409
  Serious: Yes (Life-Threatening, Hospitalization)
  Sender: FDA-Public Use
  Company Number: NL-TEVA-2020-NL-1195086

PATIENT
  Age: 41 Year
  Sex: Male
  Weight: 90.9 kg

DRUGS (3)
  1. LITHIUMCARBONAAT [Concomitant]
     Active Substance: LITHIUM CARBONATE
     Dosage: TABLET, 400 MG (MILLIGRAM)
  2. CLOZAPINE. [Suspect]
     Active Substance: CLOZAPINE
     Indication: BIPOLAR DISORDER
     Dosage: 125 MG ORALLY, ONCE DAILY, 5 25 MG TABLETS IN ONE GO
     Route: 065
     Dates: start: 20200117, end: 20200203
  3. CLONAZEPAM. [Concomitant]
     Active Substance: CLONAZEPAM
     Dosage: TABLET, 0,5 MG (MILLIGRAM)

REACTIONS (3)
  - Pneumonitis [Recovered/Resolved]
  - Colitis [Recovered/Resolved]
  - Tubulointerstitial nephritis [Recovered/Resolved]

NARRATIVE: CASE EVENT DATE: 20200131
